FAERS Safety Report 9346905 (Version 1)
Quarter: 2013Q2

REPORT INFORMATION
  Report Type: Spontaneous
  Country: US (occurrence: US)
  Receive Date: 20130613
  Receipt Date: 20130613
  Transmission Date: 20140414
  Serious: Yes (Hospitalization)
  Sender: FDA-Public Use
  Company Number: PHEH2013US012702

PATIENT
  Age: 13 Year
  Sex: Female

DRUGS (3)
  1. FOCALIN XR [Suspect]
     Dosage: 20 MG, UNK
     Route: 048
  2. KLONOPIN [Concomitant]
     Dosage: 25 MG, UNK
  3. MULTIVITAMINS [Concomitant]
     Dosage: UNK UKN, UNK

REACTIONS (6)
  - Loss of consciousness [Unknown]
  - Syncope [Unknown]
  - Head injury [Unknown]
  - Cold sweat [Unknown]
  - Paraesthesia [Unknown]
  - Malaise [Unknown]
